FAERS Safety Report 16042683 (Version 1)
Quarter: 2019Q1

REPORT INFORMATION
  Report Type: Spontaneous
  Country: PL (occurrence: PL)
  Receive Date: 20190306
  Receipt Date: 20190306
  Transmission Date: 20190418
  Serious: Yes (Hospitalization, Other)
  Sender: FDA-Public Use
  Company Number: PL-AMGEN-POLSP2019033201

PATIENT
  Age: 71 Year
  Sex: Male
  Weight: 79 kg

DRUGS (1)
  1. XGEVA [Suspect]
     Active Substance: DENOSUMAB
     Indication: PROSTATE CANCER
     Dosage: 120 UNIT, UNK
     Route: 058

REACTIONS (4)
  - Pain [Recovering/Resolving]
  - Oedema [Recovering/Resolving]
  - Trismus [Recovering/Resolving]
  - Necrosis [Recovering/Resolving]

NARRATIVE: CASE EVENT DATE: 201405
